FAERS Safety Report 4662163-2 (Version None)
Quarter: 2005Q2

REPORT INFORMATION
  Report Type: 
  Country: None (occurrence: None)
  Receive Date: 20050512
  Receipt Date: 20050426
  Transmission Date: 20051028
  Serious: Yes (Hospitalization, Other)
  Sender: FDA-Public Use
  Company Number: USA050496748

PATIENT
  Age: 40 Year
  Sex: Male

DRUGS (2)
  1. CYMBALTA [Suspect]
     Dosage: 90 MG
     Dates: start: 20050201, end: 20050401
  2. DILAUDID [Concomitant]

REACTIONS (2)
  - MIGRAINE [None]
  - SEROTONIN SYNDROME [None]
